FAERS Safety Report 7357491-6 (Version None)
Quarter: 2011Q1

REPORT INFORMATION
  Report Type: 
  Country: None (occurrence: None)
  Receive Date: 20110317
  Receipt Date: 20110304
  Transmission Date: 20110831
  Serious: Yes (Hospitalization)
  Sender: FDA-Public Use
  Company Number: PHFR2010GB05681

PATIENT
  Sex: Female

DRUGS (2)
  1. LITHIUM [Concomitant]
     Indication: AFFECTIVE DISORDER
  2. CLOZARIL [Suspect]
     Indication: SCHIZOPHRENIA
     Dosage: UNK
     Route: 048
     Dates: start: 20101123

REACTIONS (5)
  - PLATELET COUNT INCREASED [None]
  - NEUTROPHIL COUNT INCREASED [None]
  - MEAN CELL HAEMOGLOBIN DECREASED [None]
  - GENERAL PHYSICAL CONDITION ABNORMAL [None]
  - WHITE BLOOD CELL COUNT INCREASED [None]
